FAERS Safety Report 23657930 (Version 1)
Quarter: 2024Q1

REPORT INFORMATION
  Report Type: Spontaneous
  Country: AU (occurrence: AU)
  Receive Date: 20240321
  Receipt Date: 20240321
  Transmission Date: 20240410
  Serious: Yes (Hospitalization)
  Sender: FDA-Public Use
  Company Number: AU-MYLANLABS-2024M1026340

PATIENT
  Age: 33 Year
  Sex: Female

DRUGS (8)
  1. AMOXICILLIN [Suspect]
     Active Substance: AMOXICILLIN
     Indication: Appendicitis
     Dosage: UNK
     Route: 042
     Dates: start: 2017
  2. METRONIDAZOLE [Suspect]
     Active Substance: METRONIDAZOLE
     Indication: Appendicitis
     Dosage: UNK
     Route: 042
     Dates: start: 2017
  3. CIPROFLOXACIN [Suspect]
     Active Substance: CIPROFLOXACIN
     Indication: Appendicitis
     Dosage: UNK
     Route: 065
     Dates: start: 2017
  4. GENTAMICIN [Suspect]
     Active Substance: GENTAMICIN
     Indication: Appendicitis
     Dosage: UNK
     Route: 042
     Dates: start: 2017
  5. CEPHALEXIN [Suspect]
     Active Substance: CEPHALEXIN
     Indication: Appendicitis
     Dosage: UNK
     Route: 042
     Dates: start: 2017
  6. PREDNISOLONE [Concomitant]
     Active Substance: PREDNISOLONE
     Indication: Lupus nephritis
     Dosage: 7.5 MILLIGRAM
     Route: 065
  7. AZATHIOPRINE [Concomitant]
     Active Substance: AZATHIOPRINE
     Indication: Lupus nephritis
     Dosage: 50 MILLIGRAM, QD
     Route: 065
  8. HYDROXYCHLOROQUINE [Concomitant]
     Active Substance: HYDROXYCHLOROQUINE
     Indication: Lupus nephritis
     Dosage: 400 MILLIGRAM, QD
     Route: 065
     Dates: end: 2017

REACTIONS (1)
  - Renal tubular necrosis [Recovering/Resolving]

NARRATIVE: CASE EVENT DATE: 20170101
